FAERS Safety Report 10208072 (Version 1)
Quarter: 2014Q2

REPORT INFORMATION
  Report Type: Report from Study
  Country: US (occurrence: US)
  Receive Date: 20140530
  Receipt Date: 20140530
  Transmission Date: 20141212
  Serious: Yes (Hospitalization)
  Sender: FDA-Public Use
  Company Number: PHEH2014US010810

PATIENT
  Sex: Female

DRUGS (1)
  1. ILARIS [Suspect]
     Indication: JUVENILE IDIOPATHIC ARTHRITIS
     Dosage: 300 MG, EVERY 4 WEEKS
     Route: 058

REACTIONS (1)
  - Histiocytosis haematophagic [Unknown]
